FAERS Safety Report 19123017 (Version 1)
Quarter: 2021Q2

REPORT INFORMATION
  Report Type: Spontaneous
  Country: US (occurrence: US)
  Receive Date: 20210412
  Receipt Date: 20210412
  Transmission Date: 20210717
  Serious: Yes (Hospitalization)
  Sender: FDA-Public Use
  Company Number: US-BAYER-2021-120457

PATIENT
  Age: 37 Year
  Sex: Female

DRUGS (2)
  1. ZOLOFT [Concomitant]
     Active Substance: SERTRALINE HYDROCHLORIDE
     Indication: POSTPARTUM ANXIETY
     Dates: start: 20190805
  2. MIRENA [Suspect]
     Active Substance: LEVONORGESTREL
     Indication: CONTRACEPTION
     Dosage: 20 ?G PER DAY CONTINUOUSLY
     Route: 015
     Dates: start: 20201005, end: 20210306

REACTIONS (6)
  - Back pain [None]
  - Pregnancy with contraceptive device [Recovered/Resolved with Sequelae]
  - Device expulsion [Recovered/Resolved]
  - Arthralgia [None]
  - Drug ineffective [None]
  - Neck pain [None]

NARRATIVE: CASE EVENT DATE: 202103
